FAERS Safety Report 25260242 (Version 3)
Quarter: 2025Q3

REPORT INFORMATION
  Report Type: Spontaneous
  Country: US (occurrence: US)
  Receive Date: 20250501
  Receipt Date: 20250804
  Transmission Date: 20251020
  Serious: No
  Sender: BIOGEN
  Company Number: US-BIOGEN-2025BI01309607

PATIENT
  Sex: Female

DRUGS (1)
  1. TYSABRI [Suspect]
     Active Substance: NATALIZUMAB
     Indication: Multiple sclerosis
     Dosage: INFUSING EVERY 6 WEEKS INSTEAD OF EVERY 4 WEEKS PER DIRECTION OF PRESCRIBER
     Route: 050
     Dates: start: 20250424

REACTIONS (2)
  - Prescribed underdose [Not Recovered/Not Resolved]
  - Dizziness [Recovered/Resolved]
